FAERS Safety Report 4623851-7 (Version None)
Quarter: 2005Q1

REPORT INFORMATION
  Report Type: 
  Country: None (occurrence: None)
  Receive Date: 20050331
  Receipt Date: 20050328
  Transmission Date: 20050727
  Serious: Yes (Hospitalization, Other)
  Sender: FDA-Public Use
  Company Number: 200512505US

PATIENT
  Age: 72 Year
  Sex: Male

DRUGS (2)
  1. LOVENOX [Suspect]
     Indication: DEEP VEIN THROMBOSIS
  2. COUMADIN [Suspect]

REACTIONS (3)
  - HAEMOGLOBIN DECREASED [None]
  - SUBCUTANEOUS ABSCESS [None]
  - WOUND HAEMORRHAGE [None]
